FAERS Safety Report 12418462 (Version 1)
Quarter: 2016Q2

REPORT INFORMATION
  Report Type: Spontaneous
  Country: ZA (occurrence: ZA)
  Receive Date: 20160531
  Receipt Date: 20160531
  Transmission Date: 20160815
  Serious: Yes (Other)
  Sender: FDA-Public Use
  Company Number: ZA-ACCORD-040899

PATIENT
  Age: 42 Year
  Sex: Female
  Weight: 61 kg

DRUGS (1)
  1. PAXITAS [Suspect]
     Active Substance: PACLITAXEL
     Indication: BREAST CANCER
     Dosage: STRENGTH: 100 MG
     Route: 042
     Dates: start: 20160413

REACTIONS (1)
  - Burning sensation [Not Recovered/Not Resolved]

NARRATIVE: CASE EVENT DATE: 20160518
